FAERS Safety Report 17105163 (Version 1)
Quarter: 2019Q4

REPORT INFORMATION
  Report Type: Spontaneous
  Country: FR (occurrence: FR)
  Receive Date: 20191203
  Receipt Date: 20191203
  Transmission Date: 20200122
  Serious: Yes (Hospitalization)
  Sender: FDA-Public Use
  Company Number: FR-TEVA-2019-FR-1144616

PATIENT
  Age: 47 Year
  Sex: Female
  Weight: 84.8 kg

DRUGS (10)
  1. FLUOROURACILE [Suspect]
     Active Substance: FLUOROURACIL
     Indication: INVASIVE DUCTAL BREAST CARCINOMA
     Dosage: 920 MG
     Route: 041
     Dates: start: 20190826, end: 20190826
  2. ENDOXAN [Suspect]
     Active Substance: CYCLOPHOSPHAMIDE
     Indication: INVASIVE DUCTAL BREAST CARCINOMA
     Dosage: 920 MG
     Route: 041
     Dates: start: 20190826, end: 20190916
  3. PELMEG 6 MG, SOLUTION INJECTABLE EN SERINGUE PR?REMPLIE [Concomitant]
  4. ONDANSETRON [Suspect]
     Active Substance: ONDANSETRON
     Indication: PROPHYLAXIS OF NAUSEA AND VOMITING
     Dosage: 8 MG
     Route: 042
     Dates: start: 20190826, end: 20190916
  5. TRILEPTAL [Concomitant]
     Active Substance: OXCARBAZEPINE
  6. ZOFENILDUO 30 MG/12,5 MG, COMPRIM? PELLICUL? [Concomitant]
  7. EMEND [Suspect]
     Active Substance: APREPITANT
     Indication: PROPHYLAXIS OF NAUSEA AND VOMITING
     Dosage: 1 DOSAGE FORM
     Route: 048
     Dates: start: 20190826, end: 20190918
  8. SOLU-MEDROL [Suspect]
     Active Substance: METHYLPREDNISOLONE SODIUM SUCCINATE
     Indication: PROPHYLAXIS OF NAUSEA AND VOMITING
     Dosage: 80 MG
     Route: 042
     Dates: start: 20190826, end: 20190916
  9. EPIRUBICINE [Suspect]
     Active Substance: EPIRUBICIN
     Indication: INVASIVE DUCTAL BREAST CARCINOMA
     Dosage: 184 MG
     Route: 041
     Dates: start: 20190826, end: 20190916
  10. SEROPLEX [Concomitant]
     Active Substance: ESCITALOPRAM OXALATE

REACTIONS (2)
  - Pyrexia [Recovered/Resolved]
  - Agranulocytosis [Recovered/Resolved]

NARRATIVE: CASE EVENT DATE: 20190924
